FAERS Safety Report 13420845 (Version 1)
Quarter: 2017Q2

REPORT INFORMATION
  Report Type: Spontaneous
  Country: KR (occurrence: KR)
  Receive Date: 20170409
  Receipt Date: 20170409
  Transmission Date: 20170830
  Serious: Yes (Other)
  Sender: FDA-Public Use
  Company Number: KR-MYLANLABS-2017M1021781

PATIENT

DRUGS (3)
  1. VINCRISTINE [Concomitant]
     Active Substance: VINCRISTINE
     Indication: PLASMA CELL MYELOMA
     Route: 065
  2. DEXAMETHASONE. [Suspect]
     Active Substance: DEXAMETHASONE
     Indication: PLASMA CELL MYELOMA
     Dosage: 20 MG ONCE EVERY 2 DAYS FOR 8 DAYS
     Route: 065
  3. THALIDOMIDE [Interacting]
     Active Substance: THALIDOMIDE
     Indication: PLASMA CELL MYELOMA
     Dosage: 100MG/D FOR 28 DAYS
     Route: 065

REACTIONS (2)
  - Drug interaction [Recovering/Resolving]
  - Toxic epidermal necrolysis [Recovering/Resolving]
